FAERS Safety Report 11492652 (Version 1)
Quarter: 2015Q3

REPORT INFORMATION
  Report Type: Spontaneous
  Country: US (occurrence: US)
  Receive Date: 20150910
  Receipt Date: 20150910
  Transmission Date: 20151125
  Serious: No
  Sender: FDA-Public Use
  Company Number: US-009507513-1509USA002990

PATIENT
  Age: 38 Year
  Sex: Female

DRUGS (5)
  1. CEFAZOLIN [Concomitant]
     Active Substance: CEFAZOLIN
     Dosage: 2 G, ONCE
  2. MEPERIDINE HYDROCHLORIDE. [Concomitant]
     Active Substance: MEPERIDINE HYDROCHLORIDE
     Dosage: 50 MG, 6 DOSES
  3. PROMETHAZINE [Concomitant]
     Active Substance: PROMETHAZINE\PROMETHAZINE HYDROCHLORIDE
     Dosage: 25 MG, 6 DOSES
  4. AMPICILLIN [Concomitant]
     Active Substance: AMPICILLIN
     Dosage: 2 G, ONCE
  5. CELESTONE [Suspect]
     Active Substance: BETAMETHASONE
     Dosage: 12 MG, TWO DOSES
     Route: 048

REACTIONS (1)
  - Exposure during pregnancy [Recovered/Resolved]
